FAERS Safety Report 9498325 (Version 2)
Quarter: 2013Q3

REPORT INFORMATION
  Report Type: Spontaneous
  Country: FR (occurrence: FR)
  Receive Date: 20130904
  Receipt Date: 20130904
  Transmission Date: 20140515
  Serious: Yes (Other)
  Sender: FDA-Public Use
  Company Number: FR-BAYER-2013-101389

PATIENT
  Age: 63 Year
  Sex: Male

DRUGS (1)
  1. LEVITRA [Suspect]
     Dosage: DAILY DOSE 30 MG
     Route: 048
     Dates: start: 20130730, end: 20130731

REACTIONS (4)
  - Muscle contracture [Recovered/Resolved]
  - Back pain [Recovered/Resolved]
  - Inappropriate schedule of drug administration [Recovered/Resolved]
  - Medication error [Recovered/Resolved]
